FAERS Safety Report 8786169 (Version 1)
Quarter: 2012Q4

REPORT INFORMATION
  Report Type: 
  Country: US (occurrence: US)
  Receive Date: 20120914
  Receipt Date: 20120914
  Transmission Date: 20130627
  Serious: No
  Sender: FDA-Public Use
  Company Number: US-ASTRAZENECA-2012SE61200

PATIENT
  Age: 60 Year
  Sex: Female
  Weight: 104.3 kg

DRUGS (5)
  1. NEXIUM [Suspect]
     Indication: GASTROOESOPHAGEAL REFLUX DISEASE
     Route: 048
     Dates: end: 20120707
  2. NEXIUM [Suspect]
     Indication: GASTROOESOPHAGEAL REFLUX DISEASE
     Route: 048
     Dates: start: 20120713, end: 20120713
  3. SYNTHROID [Concomitant]
     Indication: THYROID DISORDER
  4. ALLEGRA [Concomitant]
     Indication: RASH
  5. ZYRTEC [Concomitant]
     Indication: RASH

REACTIONS (3)
  - Gastrooesophageal reflux disease [Unknown]
  - Rash pruritic [Recovering/Resolving]
  - Abdominal discomfort [Unknown]
